FAERS Safety Report 9621353 (Version 2)
Quarter: 2013Q4

REPORT INFORMATION
  Report Type: Spontaneous
  Country: HU (occurrence: HU)
  Receive Date: 20131015
  Receipt Date: 20131022
  Transmission Date: 20140711
  Serious: Yes (Other)
  Sender: FDA-Public Use
  Company Number: HU-JNJFOC-20131005055

PATIENT
  Age: 73 Year
  Sex: Female

DRUGS (3)
  1. SIMPONI [Suspect]
     Indication: RHEUMATOID ARTHRITIS
     Route: 058
     Dates: end: 201204
  2. LEFLUNOMIDE [Concomitant]
     Route: 065
  3. CHLOROQUINE [Concomitant]
     Route: 065

REACTIONS (1)
  - Nodule [Recovered/Resolved]
